FAERS Safety Report 19495445 (Version 4)
Quarter: 2022Q1

REPORT INFORMATION
  Report Type: Spontaneous
  Country: US (occurrence: US)
  Receive Date: 20210706
  Receipt Date: 20220210
  Transmission Date: 20220424
  Serious: Yes (Hospitalization, Other)
  Sender: FDA-Public Use
  Company Number: US-BRISTOL-MYERS SQUIBB COMPANY-BMS-2021-064005

PATIENT
  Age: 69 Year
  Sex: Male

DRUGS (2)
  1. SPRYCEL [Suspect]
     Active Substance: DASATINIB
     Indication: Chronic myeloid leukaemia
     Dosage: 140 MILLIGRAM, QD
     Route: 048
     Dates: start: 20210603
  2. CYTOXAN [Concomitant]
     Active Substance: CYCLOPHOSPHAMIDE
     Indication: Leukocytosis
     Dosage: ONCE
     Route: 042
     Dates: start: 20210610, end: 20210610

REACTIONS (3)
  - Tumour lysis syndrome [Recovered/Resolved]
  - Pulmonary hypertension [Unknown]
  - Fluid retention [Unknown]

NARRATIVE: CASE EVENT DATE: 20210608
